FAERS Safety Report 9124099 (Version 1)
Quarter: 2013Q1

REPORT INFORMATION
  Report Type: Report from Study
  Country: KR (occurrence: KR)
  Receive Date: 20130227
  Receipt Date: 20130227
  Transmission Date: 20140127
  Serious: Yes (Hospitalization)
  Sender: FDA-Public Use
  Company Number: KR-ABBOTT-13P-090-1053535-00

PATIENT
  Age: 52 Year
  Sex: Male

DRUGS (10)
  1. KALETRA [Suspect]
     Indication: HIV INFECTION
     Route: 048
     Dates: start: 20091022
  2. 3TC/AZT [Concomitant]
     Indication: ANTIRETROVIRAL THERAPY
     Route: 048
     Dates: start: 20091022, end: 20100411
  3. T-S [Concomitant]
     Indication: HIV INFECTION
     Route: 048
     Dates: start: 20091008, end: 20100311
  4. YUHANZID [Concomitant]
     Indication: TUBERCULOSIS
     Route: 048
     Dates: start: 20091008, end: 20100411
  5. MYAMBUTOL [Concomitant]
     Indication: TUBERCULOSIS
     Route: 048
     Dates: start: 20091008, end: 20100411
  6. PYRIDOXINE [Concomitant]
     Indication: TUBERCULOSIS
     Route: 048
  7. MYCOBUTIN [Concomitant]
     Indication: TUBERCULOSIS
     Route: 048
     Dates: start: 20091022, end: 20100411
  8. ANTIBIO [Concomitant]
     Indication: PROPHYLAXIS AGAINST DIARRHOEA
     Route: 054
     Dates: start: 20100305, end: 20100411
  9. MUCOSTA [Concomitant]
     Indication: PROPHYLAXIS AGAINST GASTROINTESTINAL ULCER
     Route: 048
     Dates: start: 20091008, end: 20091103
  10. ABC [Concomitant]
     Indication: ANTIRETROVIRAL THERAPY
     Route: 048
     Dates: start: 20100830

REACTIONS (3)
  - Lymphadenitis [Recovered/Resolved]
  - Intervertebral disc protrusion [Recovered/Resolved]
  - Polyneuropathy [Recovering/Resolving]
